FAERS Safety Report 9262118 (Version 1)
Quarter: 2013Q2

REPORT INFORMATION
  Report Type: Spontaneous
  Country: US (occurrence: US)
  Receive Date: 20130430
  Receipt Date: 20130430
  Transmission Date: 20140414
  Serious: Yes (Other)
  Sender: FDA-Public Use
  Company Number: US-AMGEN-USASP2013023407

PATIENT
  Age: 76 Year
  Sex: Female
  Weight: 59 kg

DRUGS (2)
  1. EPOGEN [Suspect]
     Indication: RENAL FAILURE CHRONIC
     Dosage: 14500 UNIT, 2 TIMES/WK
     Route: 040
     Dates: start: 20121003
  2. KEFLEX                             /00145501/ [Concomitant]
     Indication: OSTEOARTHRITIS
     Dosage: 00 MG, QD
     Route: 048
     Dates: start: 2010

REACTIONS (2)
  - Haemoglobin abnormal [Unknown]
  - Therapeutic response decreased [Recovering/Resolving]
